FAERS Safety Report 16713499 (Version 3)
Quarter: 2019Q3

REPORT INFORMATION
  Report Type: Report from Study
  Country: None (occurrence: CH)
  Receive Date: 20190819
  Receipt Date: 20190911
  Transmission Date: 20191004
  Serious: Yes (Death, Other)
  Sender: FDA-Public Use
  Company Number: CH-ABBVIE-19K-151-2892669-00

PATIENT
  Age: 80 Year
  Sex: Male

DRUGS (3)
  1. DUODOPA [Suspect]
     Active Substance: CARBIDOPA\LEVODOPA
     Dosage: (24 H THERAPY)MD: 8 ML; CR DAY: 3.8 ML/H; CR NIGHT: 1.5 ML/H; ED: 1.5 ML; 1 CASSETTE/DAY
     Route: 050
     Dates: start: 20190729
  2. DUODOPA [Suspect]
     Active Substance: CARBIDOPA\LEVODOPA
     Indication: PARKINSON^S DISEASE
     Dosage: STRENGTH (CMP): 20 MG/ML 5 MG/ML
     Route: 050
     Dates: start: 20150421, end: 20190726
  3. DUODOPA [Suspect]
     Active Substance: CARBIDOPA\LEVODOPA
     Dosage: (24 H THERAPY)MD: 8 ML; CR DAY: 3.8 ML/H; CR NIGHT: 1.5 ML/H; ED: 3 ML
     Route: 050
     Dates: start: 20190726, end: 20190729

REACTIONS (3)
  - Pneumonia aspiration [Unknown]
  - Death [Fatal]
  - Dysphagia [Not Recovered/Not Resolved]

NARRATIVE: CASE EVENT DATE: 20190814
